FAERS Safety Report 17143448 (Version 1)
Quarter: 2019Q4

REPORT INFORMATION
  Report Type: Spontaneous
  Country: FR (occurrence: FR)
  Receive Date: 20191211
  Receipt Date: 20191211
  Transmission Date: 20200122
  Serious: Yes (Other)
  Sender: FDA-Public Use
  Company Number: FR-AMERICAN REGENT INC-20190838

PATIENT
  Age: 28 Year
  Sex: Female

DRUGS (1)
  1. VENOFER [Suspect]
     Active Substance: IRON SUCROSE
     Indication: BLOOD LOSS ANAEMIA
     Dosage: 1 DOSAGE FORM, 1 D 1 DAYS
     Dates: start: 20190402, end: 20190402

REACTIONS (4)
  - Infusion site pain [Not Recovered/Not Resolved]
  - Oedema [Not Recovered/Not Resolved]
  - Thrombosis [Not Recovered/Not Resolved]
  - Erythema [Not Recovered/Not Resolved]

NARRATIVE: CASE EVENT DATE: 20190402
